FAERS Safety Report 5336905-7 (Version None)
Quarter: 2007Q2

REPORT INFORMATION
  Report Type: 
  Country: None (occurrence: None)
  Receive Date: 20070529
  Receipt Date: 20070514
  Transmission Date: 20071010
  Serious: Yes (Hospitalization)
  Sender: FDA-Public Use
  Company Number: GB-AMGEN-US226369

PATIENT
  Age: 22 Year
  Sex: Female

DRUGS (1)
  1. ENBREL [Suspect]
     Indication: RHEUMATOID ARTHRITIS
     Route: 058
     Dates: start: 20010514

REACTIONS (6)
  - EYE SWELLING [None]
  - INJECTION SITE PAIN [None]
  - PYREXIA [None]
  - RASH [None]
  - SKIN DISORDER [None]
  - SWELLING FACE [None]
